FAERS Safety Report 9685074 (Version 2)
Quarter: 2013Q4

REPORT INFORMATION
  Report Type: Spontaneous
  Country: IT (occurrence: IT)
  Receive Date: 20131113
  Receipt Date: 20131225
  Transmission Date: 20140711
  Serious: Yes (Hospitalization, Other)
  Sender: FDA-Public Use
  Company Number: IT-BRISTOL-MYERS SQUIBB COMPANY-19788025

PATIENT
  Age: 87 Year
  Sex: Female

DRUGS (8)
  1. COUMADIN TABS 5 MG [Suspect]
     Dates: start: 20130101, end: 20130902
  2. AUGMENTIN [Interacting]
     Dosage: 875 MG/125 MG TABLETS
     Dates: start: 20130821, end: 20130827
  3. RAMIPRIL [Concomitant]
  4. FUROSEMIDE [Concomitant]
  5. DEURSIL [Concomitant]
     Dosage: 300 MG TABLETS
  6. NOLVADEX [Concomitant]
     Dosage: 10 MG TABLETS
  7. TAVOR [Concomitant]
     Dosage: TABLETS
     Route: 002
  8. LAROXYL [Concomitant]
     Dosage: 40MG/ML ORAL DROPS
     Route: 048

REACTIONS (2)
  - International normalised ratio increased [Recovered/Resolved]
  - Drug interaction [Unknown]
